FAERS Safety Report 19180717 (Version 4)
Quarter: 2023Q4

REPORT INFORMATION
  Report Type: Spontaneous
  Country: US (occurrence: US)
  Receive Date: 20210426
  Receipt Date: 20231229
  Transmission Date: 20240110
  Serious: Yes (Hospitalization, Other)
  Sender: FDA-Public Use
  Company Number: US-APOTEX-2021AP009731

PATIENT
  Age: 16 Year
  Sex: Female

DRUGS (2)
  1. GUANFACINE [Suspect]
     Active Substance: GUANFACINE
     Indication: Attention deficit hyperactivity disorder
     Dosage: 2 MILLIGRAM, QD
     Route: 048
     Dates: start: 20201231, end: 20210409
  2. LITHIUM [Suspect]
     Active Substance: LITHIUM
     Indication: Suicidal ideation
     Dosage: UNK, TWEAKED DOSE
     Route: 065
     Dates: start: 20210108, end: 20210208

REACTIONS (6)
  - Suicidal ideation [Recovered/Resolved]
  - General physical health deterioration [Unknown]
  - Depression [Unknown]
  - Manufacturing materials contamination [Unknown]
  - Recalled product administered [Unknown]
  - Drug ineffective [Unknown]

NARRATIVE: CASE EVENT DATE: 20201231
